FAERS Safety Report 5571233-6 (Version None)
Quarter: 2007Q4

REPORT INFORMATION
  Report Type: 
  Country: None (occurrence: None)
  Receive Date: 20071221
  Receipt Date: 20070302
  Transmission Date: 20080405
  Serious: No
  Sender: FDA-Public Use
  Company Number: A0641622A

PATIENT
  Age: 65 Year
  Sex: Male

DRUGS (3)
  1. FLONASE [Suspect]
     Dosage: 1SPR AS REQUIRED
     Route: 045
     Dates: start: 20070201
  2. LIPITOR [Concomitant]
  3. MELOXICAM [Concomitant]

REACTIONS (3)
  - PARAESTHESIA ORAL [None]
  - SPEECH DISORDER [None]
  - SWOLLEN TONGUE [None]
